FAERS Safety Report 7941368-9 (Version None)
Quarter: 2011Q4

REPORT INFORMATION
  Report Type: 
  Country: None (occurrence: None)
  Receive Date: 20111122
  Receipt Date: 20111122
  Transmission Date: 20120403
  Serious: Yes (Hospitalization)
  Sender: FDA-Public Use
  Company Number: None

PATIENT
  Sex: Female
  Weight: 58.9676 kg

DRUGS (1)
  1. HUMIRA [Suspect]
     Indication: RHEUMATOID ARTHRITIS
     Dosage: 0.8 ML EVERY 2 WKS
     Dates: start: 20071201, end: 20090629

REACTIONS (5)
  - IMMUNE SYSTEM DISORDER [None]
  - PURULENCE [None]
  - OVARIAN DISORDER [None]
  - DIVERTICULITIS [None]
  - INTESTINAL PERFORATION [None]
